FAERS Safety Report 24057215 (Version 2)
Quarter: 2025Q2

REPORT INFORMATION
  Report Type: Report from Study
  Country: UY (occurrence: UY)
  Receive Date: 20240706
  Receipt Date: 20250527
  Transmission Date: 20250716
  Serious: Yes (Hospitalization, Other)
  Sender: ABBVIE
  Company Number: UY-ABBVIE-5826058

PATIENT
  Age: 41 Year
  Sex: Male

DRUGS (2)
  1. HUMIRA [Suspect]
     Active Substance: ADALIMUMAB
     Indication: Crohn^s disease
     Dosage: FORM STRENGTH:40 MILLIGRAM, CITRATE FREE
     Route: 058
     Dates: start: 2024
  2. HUMIRA [Suspect]
     Active Substance: ADALIMUMAB
     Dosage: FORM STRENGTH:40 MILLIGRAM, CITRATE FREE
     Route: 058
     Dates: start: 20201112, end: 20240609

REACTIONS (7)
  - Intestinal mass [Unknown]
  - Abdominal pain upper [Recovered/Resolved]
  - Small intestinal obstruction [Unknown]
  - Crohn^s disease [Unknown]
  - Ileostomy [Unknown]
  - Abdominal wall operation [Unknown]
  - Abdominal pain upper [Recovered/Resolved]

NARRATIVE: CASE EVENT DATE: 20240605
